FAERS Safety Report 10062537 (Version 1)
Quarter: 2014Q1

REPORT INFORMATION
  Report Type: Spontaneous
  Country: US (occurrence: None)
  Receive Date: 20140313
  Receipt Date: 20140313
  Transmission Date: 20141002
  Serious: No
  Sender: FDA-Public Use
  Company Number: 1000050884

PATIENT
  Sex: Male

DRUGS (1)
  1. DALIRESP (ROFLUMILAST) (500 MICROGRAM, TABLETS) [Suspect]
     Dosage: 500 MCG (500 MCG, 1 IN 1 D)  THERAPY DATES - STOPPED

REACTIONS (2)
  - Abdominal distension [None]
  - Diarrhoea [None]
